FAERS Safety Report 13747257 (Version 1)
Quarter: 2017Q3

REPORT INFORMATION
  Report Type: Spontaneous
  Country: US (occurrence: US)
  Receive Date: 20170712
  Receipt Date: 20170712
  Transmission Date: 20171127
  Serious: Yes (Hospitalization)
  Sender: FDA-Public Use
  Company Number: US-SA-2017SA042766

PATIENT
  Age: 73 Year
  Sex: Male
  Weight: 105.14 kg

DRUGS (5)
  1. FIRMAGON [Concomitant]
     Active Substance: DEGARELIX ACETATE
     Route: 065
     Dates: start: 20161117
  2. JEVTANA [Suspect]
     Active Substance: CABAZITAXEL
     Indication: HORMONE-REFRACTORY PROSTATE CANCER
     Route: 042
     Dates: start: 20161117, end: 20161117
  3. JEVTANA [Suspect]
     Active Substance: CABAZITAXEL
     Indication: HORMONE-REFRACTORY PROSTATE CANCER
     Route: 042
     Dates: start: 20170105, end: 20170105
  4. JEVTANA [Suspect]
     Active Substance: CABAZITAXEL
     Indication: HORMONE-REFRACTORY PROSTATE CANCER
     Route: 042
  5. XGEVA [Concomitant]
     Active Substance: DENOSUMAB
     Route: 065
     Dates: start: 20161117

REACTIONS (1)
  - Febrile neutropenia [Unknown]

NARRATIVE: CASE EVENT DATE: 201611
